FAERS Safety Report 11473853 (Version 1)
Quarter: 2015Q3

REPORT INFORMATION
  Report Type: Spontaneous
  Country: US (occurrence: US)
  Receive Date: 20150908
  Receipt Date: 20150908
  Transmission Date: 20151125
  Serious: No
  Sender: FDA-Public Use
  Company Number: US-JAZZ-2013-US-000937

PATIENT
  Age: 47 Year
  Sex: Male

DRUGS (2)
  1. XYREM [Suspect]
     Active Substance: SODIUM OXYBATE
     Indication: SOMNOLENCE
     Dosage: 3.0 G, BID
     Route: 048
     Dates: start: 20130905
  2. XYREM [Suspect]
     Active Substance: SODIUM OXYBATE
     Indication: NARCOLEPSY
     Dosage: 3.0 G, BID
     Route: 048
     Dates: start: 201304, end: 2013

REACTIONS (3)
  - Haemorrhoids [Unknown]
  - Gastrointestinal surgery [Recovered/Resolved]
  - Polyp [Recovered/Resolved]

NARRATIVE: CASE EVENT DATE: 20130904
